FAERS Safety Report 10094856 (Version 1)
Quarter: 2014Q2

REPORT INFORMATION
  Report Type: Spontaneous
  Country: US (occurrence: US)
  Receive Date: 20140422
  Receipt Date: 20140422
  Transmission Date: 20141212
  Serious: Yes (Disabling)
  Sender: FDA-Public Use
  Company Number: US-FRI-1000066625

PATIENT
  Sex: Male

DRUGS (2)
  1. LEXAPRO [Suspect]
     Indication: DEPRESSION
     Route: 064
     Dates: start: 2008, end: 20081205
  2. LOVENOX [Concomitant]
     Indication: PROTEIN S DEFICIENCY
     Route: 064

REACTIONS (2)
  - Learning disorder [Not Recovered/Not Resolved]
  - Jaundice [Recovered/Resolved]
